FAERS Safety Report 4999341-9 (Version None)
Quarter: 2006Q2

REPORT INFORMATION
  Report Type: 
  Country: None (occurrence: None)
  Receive Date: 20060511
  Receipt Date: 20060504
  Transmission Date: 20061013
  Serious: Yes (Death, Disabling, Other)
  Sender: FDA-Public Use
  Company Number: PHBS2006ES06717

PATIENT
  Age: 73 Year
  Sex: Female

DRUGS (2)
  1. AREDIA [Suspect]
     Indication: MULTIPLE MYELOMA
     Route: 065
  2. ZOMETA [Suspect]
     Indication: MULTIPLE MYELOMA
     Dosage: 4 MG, QMO
     Route: 042
     Dates: start: 20030101, end: 20040601

REACTIONS (9)
  - DEATH [None]
  - FISTULA [None]
  - GASTROINTESTINAL TUBE INSERTION [None]
  - IMPAIRED HEALING [None]
  - NEUTROPENIA [None]
  - OSTEONECROSIS [None]
  - PAIN [None]
  - PURULENT DISCHARGE [None]
  - TOOTH EXTRACTION [None]
